FAERS Safety Report 15990914 (Version 2)
Quarter: 2019Q2

REPORT INFORMATION
  Report Type: Report from Study
  Country: US (occurrence: US)
  Receive Date: 20190221
  Receipt Date: 20190404
  Transmission Date: 20190711
  Serious: Yes (Other)
  Sender: FDA-Public Use
  Company Number: US-TEVA-2019-US-1013740

PATIENT

DRUGS (2)
  1. ARA-C [Suspect]
     Active Substance: CYTARABINE
     Indication: ACUTE MYELOID LEUKAEMIA
     Dosage: 2 G/M2 TWICE DAILY; ADMINISTERED ON DAYS 1 AND 5
     Route: 065
  2. MITOXANTRONE [Suspect]
     Active Substance: MITOXANTRONE HYDROCHLORIDE
     Indication: ACUTE MYELOID LEUKAEMIA
     Dosage: ADMINISTERED ON DAYS 1 AND 5
     Route: 065

REACTIONS (1)
  - Gastrointestinal toxicity [Unknown]
